FAERS Safety Report 7921825-1 (Version None)
Quarter: 2011Q4

REPORT INFORMATION
  Report Type: 
  Country: None (occurrence: None)
  Receive Date: 20111117
  Receipt Date: 20111109
  Transmission Date: 20120403
  Serious: Yes (Life-Threatening, Hospitalization, Disabling)
  Sender: FDA-Public Use
  Company Number: US-ABBOTT-11P-163-0870910-00

PATIENT
  Sex: Female
  Weight: 63.56 kg

DRUGS (3)
  1. HUMIRA [Suspect]
     Indication: PSORIASIS
     Route: 058
     Dates: start: 20090809, end: 20110807
  2. TACLONEX [Concomitant]
     Indication: PSORIASIS
     Dosage: 2-10GRAMS QD UP TO 4 WKS PRN
     Dates: start: 20090323
  3. ASPIRIN [Concomitant]
     Indication: PSORIASIS
     Dosage: 10-15MG QD
     Dates: start: 20050920

REACTIONS (1)
  - GUILLAIN-BARRE SYNDROME [None]
